FAERS Safety Report 9160209 (Version 1)
Quarter: 2013Q1

REPORT INFORMATION
  Report Type: Spontaneous
  Country: JP (occurrence: None)
  Receive Date: 20130220
  Receipt Date: 20130220
  Transmission Date: 20140127
  Serious: Yes (Other)
  Sender: FDA-Public Use
  Company Number: SYM-2013-00514

PATIENT
  Sex: 0

DRUGS (4)
  1. FLUOROURACIL (FLUOROURACIL) (SOLUTION FOR INFUSION) (FLUOROURACIL) [Suspect]
     Indication: SQUAMOUS CELL CARCINOMA
     Route: 042
  2. DOCETAXEL (DOCETAXEL) (50 MG) (DOCETAXEL) [Suspect]
     Indication: SQUAMOUS CELL CARCINOMA
     Dosage: INTRAVENOUS, EVERY CYCLE
  3. CISPLATIN (CISPLATIN) (60 MG) (CISPLATIN) [Suspect]
     Indication: SQUAMOUS CELL CARCINOMA
     Dosage: INTRAVENOUS, EVERY CYCLE
  4. THERAPEUTIC RADIOPHARMACEUTICALS (THERAPEUTIC RADIOPHARMACEUTICALS) [Suspect]
     Indication: SQUAMOUS CELL CARCINOMA

REACTIONS (1)
  - Leukopenia [None]
